FAERS Safety Report 18094319 (Version 1)
Quarter: 2020Q3

REPORT INFORMATION
  Report Type: Spontaneous
  Country: US (occurrence: US)
  Receive Date: 20200730
  Receipt Date: 20200730
  Transmission Date: 20201103
  Serious: Yes (Other)
  Sender: FDA-Public Use
  Company Number: US-TOPROL ACQUISITION LLC-2020-TOP-000301

PATIENT
  Age: 91 Year
  Sex: Female

DRUGS (1)
  1. TOPROL XL [Suspect]
     Active Substance: METOPROLOL SUCCINATE
     Indication: PRODUCT USED FOR UNKNOWN INDICATION
     Dosage: UNK

REACTIONS (5)
  - Cardiac failure [Unknown]
  - Fluid retention [Unknown]
  - Rash [Unknown]
  - Pruritus [Unknown]
  - Renal impairment [Unknown]

NARRATIVE: CASE EVENT DATE: 202002
